FAERS Safety Report 13674414 (Version 1)
Quarter: 2017Q2

REPORT INFORMATION
  Report Type: Spontaneous
  Country: US (occurrence: US)
  Receive Date: 20170621
  Receipt Date: 20170621
  Transmission Date: 20170830
  Serious: Yes (Other)
  Sender: FDA-Public Use
  Company Number: US-BAYER-2017-114847

PATIENT
  Age: 55 Year
  Sex: Male

DRUGS (3)
  1. OCTREOTIDE. [Concomitant]
     Active Substance: OCTREOTIDE
     Indication: IMPAIRED INSULIN SECRETION
     Dosage: UNK UNK, Q8HR
  2. ACARBOSE. [Suspect]
     Active Substance: ACARBOSE
     Dosage: UNK
  3. DEXTROSE. [Concomitant]
     Active Substance: DEXTROSE
     Indication: HYPOGLYCAEMIA
     Dosage: UNK

REACTIONS (2)
  - Drug intolerance [None]
  - Diarrhoea [None]
